FAERS Safety Report 6151204-1 (Version None)
Quarter: 2009Q2

REPORT INFORMATION
  Report Type: 
  Country: None (occurrence: None)
  Receive Date: 20090410
  Receipt Date: 20090403
  Transmission Date: 20091009
  Serious: Yes (Other)
  Sender: FDA-Public Use
  Company Number: US-ASTRAZENECA-2009UW08504

PATIENT
  Age: 64 Year
  Sex: Male
  Weight: 105.2 kg

DRUGS (8)
  1. NEXIUM [Suspect]
     Indication: BARRETT'S OESOPHAGUS
     Route: 048
     Dates: start: 20010401
  2. PLAVIX [Concomitant]
  3. ASPIRIN [Concomitant]
  4. CRESTOR [Concomitant]
     Route: 048
  5. ALLOPURINOL [Concomitant]
  6. CHOLICHINE [Concomitant]
  7. METOPROLOL TARTRATE [Concomitant]
     Route: 048
  8. ENALAPRIL [Concomitant]

REACTIONS (3)
  - MYOCARDIAL INFARCTION [None]
  - RENAL FAILURE CHRONIC [None]
  - TRANSIENT ISCHAEMIC ATTACK [None]
